FAERS Safety Report 17728376 (Version 1)
Quarter: 2020Q2

REPORT INFORMATION
  Report Type: Spontaneous
  Country: US (occurrence: US)
  Receive Date: 20200430
  Receipt Date: 20200430
  Transmission Date: 20200714
  Serious: Yes (Other)
  Sender: FDA-Public Use
  Company Number: US-SA-2020SA110856

PATIENT
  Sex: Female

DRUGS (1)
  1. PRALUENT [Suspect]
     Active Substance: ALIROCUMAB
     Dosage: 75 MG, QOW

REACTIONS (5)
  - Pyrexia [Not Recovered/Not Resolved]
  - Pneumonia [Unknown]
  - Coronavirus infection [Unknown]
  - Injection site pain [Unknown]
  - Chest discomfort [Not Recovered/Not Resolved]
